FAERS Safety Report 22159563 (Version 12)
Quarter: 2024Q1

REPORT INFORMATION
  Report Type: Spontaneous
  Country: CA (occurrence: CA)
  Receive Date: 20230331
  Receipt Date: 20240201
  Transmission Date: 20240409
  Serious: Yes (Hospitalization, Other)
  Sender: FDA-Public Use
  Company Number: CA-CELLTRION INC.-2022CA021258

PATIENT

DRUGS (25)
  1. INFLECTRA [Suspect]
     Active Substance: INFLIXIMAB-DYYB
     Indication: Crohn^s disease
     Dosage: 340 MG, Q 0, 2, 6, THEN EVERY 8 WEEKS
     Route: 042
     Dates: start: 20180209, end: 20180906
  2. INFLECTRA [Suspect]
     Active Substance: INFLIXIMAB-DYYB
     Dosage: 340 MG, EVERY 5 WEEK
     Route: 042
     Dates: start: 20181120, end: 20190410
  3. INFLECTRA [Suspect]
     Active Substance: INFLIXIMAB-DYYB
     Dosage: 5 MG/KG, EVERY 5 WEEK (5 MG/KG ROUNDED UP OR 400 MG EVERY 5 WEEKS)
     Route: 042
     Dates: start: 20190515, end: 20190515
  4. INFLECTRA [Suspect]
     Active Substance: INFLIXIMAB-DYYB
     Dosage: 800 MG, EVERY 4 WEEK
     Route: 042
     Dates: start: 20190619, end: 20201112
  5. INFLECTRA [Suspect]
     Active Substance: INFLIXIMAB-DYYB
     Dosage: 400 MG, EVERY 4 WEEK
     Route: 042
     Dates: start: 20201209, end: 20210520
  6. INFLECTRA [Suspect]
     Active Substance: INFLIXIMAB-DYYB
     Dosage: 350 MG, EVERY 4 WEEK
     Route: 042
     Dates: start: 20210714
  7. INFLECTRA [Suspect]
     Active Substance: INFLIXIMAB-DYYB
     Dosage: 350 MG, EVERY 4 WEEK
     Route: 042
     Dates: start: 20221107
  8. INFLECTRA [Suspect]
     Active Substance: INFLIXIMAB-DYYB
     Dosage: 350 MG, EVERY 4 WEEK
     Route: 042
     Dates: start: 20221205
  9. INFLECTRA [Suspect]
     Active Substance: INFLIXIMAB-DYYB
     Dosage: 350 MG, EVERY 4 WEEK
     Route: 042
     Dates: start: 20230126, end: 20230126
  10. INFLECTRA [Suspect]
     Active Substance: INFLIXIMAB-DYYB
     Dosage: 350 MG, EVERY 4 WEEK
     Route: 042
     Dates: start: 20230323
  11. INFLECTRA [Suspect]
     Active Substance: INFLIXIMAB-DYYB
     Dosage: 350 MG, EVERY 4 WEEK
     Route: 042
     Dates: start: 20230419
  12. INFLECTRA [Suspect]
     Active Substance: INFLIXIMAB-DYYB
     Dosage: 350 MG AFTER 4 WEEKS
     Route: 042
     Dates: start: 20230519
  13. INFLECTRA [Suspect]
     Active Substance: INFLIXIMAB-DYYB
     Dosage: 350 MG, AFTER 4 WEEKS
     Route: 042
     Dates: start: 20230614
  14. INFLECTRA [Suspect]
     Active Substance: INFLIXIMAB-DYYB
     Dosage: 350 MG, EVERY 4 WEEKS
     Route: 042
     Dates: start: 20230712
  15. INFLECTRA [Suspect]
     Active Substance: INFLIXIMAB-DYYB
     Dosage: 350 MG, 4 WEEKS AND 1 DAY
     Route: 042
     Dates: start: 20230810
  16. INFLECTRA [Suspect]
     Active Substance: INFLIXIMAB-DYYB
     Dosage: 350 MG, EVERY 4 WEEKS
     Route: 042
     Dates: start: 20230907
  17. INFLECTRA [Suspect]
     Active Substance: INFLIXIMAB-DYYB
     Dosage: 350 MG, EVERY 4 WEEKS
     Route: 042
     Dates: start: 20231005
  18. INFLECTRA [Suspect]
     Active Substance: INFLIXIMAB-DYYB
     Dosage: 350 MG, EVERY 4 WEEKS (7 WEEKS AND 1 DAY)
     Route: 042
     Dates: start: 20231124, end: 20231124
  19. INFLECTRA [Suspect]
     Active Substance: INFLIXIMAB-DYYB
     Dosage: 350 MG, EVERY 4 WEEKS
     Route: 042
     Dates: start: 20231228
  20. INFLECTRA [Suspect]
     Active Substance: INFLIXIMAB-DYYB
     Dosage: 350 MG, EVERY 4 WEEKS( 350MG)
     Route: 042
     Dates: start: 20240125
  21. METHOTREXATE [Concomitant]
     Active Substance: METHOTREXATE
     Dosage: 15 MG, WEEKLY
  22. PANTOPRAZOLE SODIUM [Concomitant]
     Active Substance: PANTOPRAZOLE SODIUM
     Dosage: 40 MG, 1X/DAY
     Dates: start: 201701
  23. SOLU-CORTEF [Concomitant]
     Active Substance: HYDROCORTISONE SODIUM SUCCINATE
     Dosage: 1 MG, UNK DOSE
  24. TYLENOL [Concomitant]
     Active Substance: ACETAMINOPHEN
     Dosage: 650 MG (1 DF), AS NEEDED
  25. ZOPICLONE [Concomitant]
     Active Substance: ZOPICLONE
     Dosage: 7.5 MG (1 DF), AS NEEDED, HS PRN
     Dates: start: 201711

REACTIONS (20)
  - Hypotension [Unknown]
  - Delirium [Unknown]
  - Bladder neoplasm [Recovering/Resolving]
  - Fall [Unknown]
  - Weight decreased [Unknown]
  - Decreased appetite [Unknown]
  - Dementia [Unknown]
  - White blood cell count decreased [Unknown]
  - Condition aggravated [Recovering/Resolving]
  - Cataract [Unknown]
  - Glaucoma [Unknown]
  - Condition aggravated [Recovered/Resolved]
  - Urine abnormality [Not Recovered/Not Resolved]
  - Dysuria [Not Recovered/Not Resolved]
  - Arthralgia [Recovered/Resolved]
  - Off label use [Unknown]
  - Off label use [Unknown]
  - Intentional product use issue [Unknown]
  - Incorrect product administration duration [Unknown]
  - Inappropriate schedule of product administration [Unknown]

NARRATIVE: CASE EVENT DATE: 20181120
